FAERS Safety Report 9479124 (Version 1)
Quarter: 2013Q3

REPORT INFORMATION
  Report Type: Spontaneous
  Country: US (occurrence: US)
  Receive Date: 20130827
  Receipt Date: 20130827
  Transmission Date: 20140515
  Serious: Yes (Hospitalization)
  Sender: FDA-Public Use
  Company Number: US-BRACCO-009787

PATIENT
  Age: 66 Year
  Sex: Female
  Weight: 102 kg

DRUGS (5)
  1. INSULIN, REGULAR [Concomitant]
     Route: 058
  2. MULTIHANCE [Suspect]
     Indication: NUCLEAR MAGNETIC RESONANCE IMAGING BRAIN
     Route: 042
     Dates: start: 20130815, end: 20130815
  3. INSULIN HUMAN INJECTION, ISOPHANE [Concomitant]
     Route: 058
  4. ASPIRIN [Concomitant]
     Route: 048
  5. METOPROLOL [Concomitant]
     Route: 048

REACTIONS (8)
  - Aphasia [Recovered/Resolved]
  - Hypotonia [Recovered/Resolved]
  - Blood pressure increased [Recovered/Resolved]
  - Convulsion [Recovered/Resolved]
  - Hyperventilation [Recovered/Resolved]
  - Malaise [Recovered/Resolved]
  - Retching [Recovered/Resolved]
  - Dizziness [Recovered/Resolved]
